FAERS Safety Report 10031911 (Version 1)
Quarter: 2014Q1

REPORT INFORMATION
  Report Type: Spontaneous
  Country: US (occurrence: US)
  Receive Date: 20140324
  Receipt Date: 20140324
  Transmission Date: 20141002
  Serious: Yes (Other)
  Sender: FDA-Public Use
  Company Number: US-PFIZER INC-2014080180

PATIENT
  Age: 65 Year
  Sex: Female
  Weight: 122.4 kg

DRUGS (2)
  1. LIPITOR [Suspect]
     Indication: BLOOD CHOLESTEROL INCREASED
     Dosage: 20 MG, 1X/DAY
     Route: 048
  2. LIPITOR [Suspect]
     Dosage: 40 MG, 1X/DAY
     Route: 048

REACTIONS (1)
  - Hypertension [Recovering/Resolving]
